FAERS Safety Report 10133597 (Version 1)
Quarter: 2014Q2

REPORT INFORMATION
  Report Type: Report from Study
  Country: BE (occurrence: BE)
  Receive Date: 20140428
  Receipt Date: 20140428
  Transmission Date: 20141212
  Serious: Yes (Hospitalization, Other)
  Sender: FDA-Public Use
  Company Number: BE-GLAXOSMITHKLINE-B0896579A

PATIENT
  Age: 76 Year
  Sex: Male
  Weight: 84 kg

DRUGS (3)
  1. PAZOPANIB [Suspect]
     Indication: RENAL CELL CARCINOMA
     Dosage: 800MG PER DAY
     Route: 048
     Dates: start: 20130301
  2. GLICAZIDE [Concomitant]
     Indication: DIABETES MELLITUS
     Dosage: 80MG TWICE PER DAY
     Route: 048
     Dates: start: 20050101, end: 20130410
  3. ZESTRIL [Concomitant]
     Indication: HYPERTENSION
     Dosage: 10MG PER DAY
     Route: 048
     Dates: start: 20120101, end: 20130411

REACTIONS (2)
  - Hypoglycaemia [Recovered/Resolved]
  - Subcutaneous abscess [Recovered/Resolved]
